FAERS Safety Report 7705451-5 (Version None)
Quarter: 2011Q3

REPORT INFORMATION
  Report Type: 
  Country: None (occurrence: None)
  Receive Date: 20110823
  Receipt Date: 20110823
  Transmission Date: 20111222
  Serious: Yes (Hospitalization)
  Sender: FDA-Public Use
  Company Number: None

PATIENT
  Age: 64 Year
  Sex: Female
  Weight: 80.7403 kg

DRUGS (6)
  1. TRIAMETERENE/HYDROCHLORATHIAZIDE [Concomitant]
  2. CISPLATIN [Suspect]
     Indication: BREAST CANCER
     Dosage: 20MG/M2 IV WEEK
     Route: 042
     Dates: start: 20110527, end: 20110726
  3. PACLITAXEL [Suspect]
     Indication: BREAST CANCER
     Dosage: 70MG/M2
     Dates: start: 20110527, end: 20110726
  4. RAD001/PLACEBO [Suspect]
     Dosage: 5MG PO DAILY
     Route: 048
  5. ANTIVERT [Concomitant]
  6. PROMETHAZINE [Concomitant]

REACTIONS (5)
  - CONFUSIONAL STATE [None]
  - METASTASES TO CENTRAL NERVOUS SYSTEM [None]
  - MENTAL STATUS CHANGES [None]
  - ADENOCARCINOMA [None]
  - VOMITING [None]
